FAERS Safety Report 20749080 (Version 1)
Quarter: 2022Q2

REPORT INFORMATION
  Report Type: Other
  Country: US (occurrence: US)
  Receive Date: 20220426
  Receipt Date: 20220426
  Transmission Date: 20220721
  Serious: No
  Sender: FDA-Public Use
  Company Number: US-LUPIN PHARMACEUTICALS INC.-2022-04139

PATIENT

DRUGS (1)
  1. BUPROPION HYDROCHLORIDE XL [Suspect]
     Active Substance: BUPROPION HYDROCHLORIDE
     Indication: Product used for unknown indication
     Dosage: UNK
     Route: 065
     Dates: start: 20211129

REACTIONS (6)
  - Crying [Unknown]
  - Asthenia [Unknown]
  - Depression [Unknown]
  - Emotional disorder [Unknown]
  - Thinking abnormal [Unknown]
  - Product substitution issue [Unknown]

NARRATIVE: CASE EVENT DATE: 20211129
